FAERS Safety Report 17721373 (Version 3)
Quarter: 2020Q2

REPORT INFORMATION
  Report Type: Other
  Country: DE (occurrence: DE)
  Receive Date: 20200429
  Receipt Date: 20200618
  Transmission Date: 20200714
  Serious: Yes (Life-Threatening, Hospitalization)
  Sender: FDA-Public Use
  Company Number: DE-CELLTRION INC.-2020DE021856

PATIENT

DRUGS (14)
  1. AMLODIPINE [Concomitant]
     Active Substance: AMLODIPINE BESYLATE
     Indication: HYPERTENSION
     Dosage: UNK
     Dates: start: 19850101, end: 20200417
  2. IRBESARTAN. [Concomitant]
     Active Substance: IRBESARTAN
     Indication: HYPERTENSION
     Dosage: UNK
     Dates: start: 19850101, end: 20200417
  3. CARBOPLATIN. [Suspect]
     Active Substance: CARBOPLATIN
     Dosage: UNK, LAST DOSE RECEIVED BEFORE SAE ON 01APR2020 (TOTAL DOSE 258.18 MG)
     Route: 065
     Dates: start: 20200325
  4. ATEZOLIZUMAB. [Suspect]
     Active Substance: ATEZOLIZUMAB
     Indication: BREAST CANCER
     Dosage: UNK, LAST DOSE RECEIVED BEFOR SAE ON 25MAR2020, 22APR2020
     Route: 042
     Dates: start: 20200122
  5. CARBOPLATIN. [Suspect]
     Active Substance: CARBOPLATIN
     Indication: BREAST CANCER
     Dosage: UNK, LAST DOSE RECEIVED BEFORE SAE ON 01APR2020 (TOTAL DOSE 294,72 MG), 29APR2020
     Route: 065
     Dates: start: 20200122
  6. PACLITAXEL. [Suspect]
     Active Substance: PACLITAXEL
     Indication: BREAST CANCER
     Dosage: UNK, LAST DOSE RECEIVED BEFORE SAE ON 01APR2020 (193 MG)
     Route: 065
     Dates: start: 20200122
  7. METOPROLOL. [Concomitant]
     Active Substance: METOPROLOL
     Indication: HYPERTENSION
     Dosage: UNK
     Dates: start: 19850101, end: 20200418
  8. CALCIUM [Concomitant]
     Active Substance: CALCIUM
     Indication: HYPOCALCAEMIA
     Dosage: UNK
     Dates: start: 20200416
  9. TAXOL [Suspect]
     Active Substance: PACLITAXEL
     Indication: BREAST CANCER
     Dosage: UNK; LAST DOSE RECEIVED BEFORE SAE ON (193 MG)
     Route: 042
     Dates: start: 20200122
  10. PACLITAXEL. [Suspect]
     Active Substance: PACLITAXEL
     Dosage: UNK, LAST DOSE RECEIVED BEFORE SAE ON 01APR2020 (TOTAL DOSE 193.50 MG), 29APR2020
     Route: 065
     Dates: start: 20200325
  11. TORASEMID [Concomitant]
     Active Substance: TORSEMIDE
     Indication: HYPERTENSION
     Dosage: UNK
     Dates: start: 19850101, end: 20200417
  12. TRASTUZUMAB (UNKNOWN) [Suspect]
     Active Substance: TRASTUZUMAB
     Indication: BREAST CANCER
     Dosage: UNK, LAT DOSE RECEIVED BEFORE SAE ON 25MAR2020 (702 MG), 22APR2020
     Route: 042
     Dates: start: 20200122
  13. METOPROLOL. [Concomitant]
     Active Substance: METOPROLOL
     Dosage: UNK
     Dates: start: 20200505
  14. PERTUZUMAB. [Suspect]
     Active Substance: PERTUZUMAB
     Indication: BREAST CANCER
     Dosage: UNK, LAST DOSE RECEIVED BEFORE SAE ON 25MAR2020 (TOTAL DOSE 420 MG), 22APR2020
     Route: 065
     Dates: start: 20200122

REACTIONS (7)
  - Decreased appetite [Recovered/Resolved]
  - Gastrointestinal disorder [Not Recovered/Not Resolved]
  - Diarrhoea [Recovered/Resolved]
  - Cardiovascular disorder [Recovered/Resolved]
  - Anaemia [Recovered/Resolved]
  - General physical health deterioration [Not Recovered/Not Resolved]
  - Product use issue [Unknown]

NARRATIVE: CASE EVENT DATE: 20200409
